FAERS Safety Report 7623156-6 (Version None)
Quarter: 2011Q3

REPORT INFORMATION
  Report Type: 
  Country: None (occurrence: None)
  Receive Date: 20110720
  Receipt Date: 20110711
  Transmission Date: 20111222
  Serious: Yes (Hospitalization, Other)
  Sender: FDA-Public Use
  Company Number: PHHY2011DE14905

PATIENT
  Sex: Female

DRUGS (4)
  1. FEMARA [Concomitant]
     Dates: start: 20100901
  2. IBUPROFEN [Concomitant]
     Indication: BONE PAIN
  3. CALCIUM CARBONATE [Concomitant]
     Dosage: 1000 MG, UNK
  4. ZOMETA [Suspect]
     Indication: BREAST CANCER
     Dosage: 4 MG, EVERY 4 WEEKS
     Dates: start: 20100909, end: 20110401

REACTIONS (5)
  - HAEMOGLOBIN DECREASED [None]
  - BLOOD CREATININE INCREASED [None]
  - RENAL DISORDER [None]
  - BLOOD UREA INCREASED [None]
  - ERYTHROPENIA [None]
